FAERS Safety Report 11418141 (Version 1)
Quarter: 2015Q3

REPORT INFORMATION
  Report Type: Spontaneous
  Country: JP (occurrence: JP)
  Receive Date: 20150825
  Receipt Date: 20150825
  Transmission Date: 20151125
  Serious: Yes (Hospitalization, Other)
  Sender: FDA-Public Use
  Company Number: JP-009507513-1508JPN009662

PATIENT
  Age: 83 Year
  Sex: Male
  Weight: 70 kg

DRUGS (7)
  1. GLACTIV [Suspect]
     Active Substance: SITAGLIPTIN
     Indication: TYPE 2 DIABETES MELLITUS
     Dosage: DAILY DOSE UNKNOWN
     Route: 048
  2. CLOPIDOGREL BISULFATE. [Concomitant]
     Active Substance: CLOPIDOGREL BISULFATE
  3. AZOSEMIDE [Concomitant]
     Active Substance: AZOSEMIDE
  4. MEMANTINE HYDROCHLORIDE [Concomitant]
     Active Substance: MEMANTINE HYDROCHLORIDE
  5. TIOTROPIUM BROMIDE [Concomitant]
     Active Substance: TIOTROPIUM BROMIDE
  6. RABEPRAZOLE SODIUM. [Concomitant]
     Active Substance: RABEPRAZOLE SODIUM
  7. DONEPEZIL HYDROCHLORIDE. [Concomitant]
     Active Substance: DONEPEZIL HYDROCHLORIDE

REACTIONS (5)
  - Acute kidney injury [Unknown]
  - Hypothyroidism [Unknown]
  - Myxoedema coma [Unknown]
  - Cardiomegaly [Unknown]
  - Pneumonia bacterial [Unknown]
